FAERS Safety Report 7537329-4 (Version None)
Quarter: 2011Q2

REPORT INFORMATION
  Report Type: 
  Country: None (occurrence: None)
  Receive Date: 20110609
  Receipt Date: 20110603
  Transmission Date: 20111010
  Serious: Yes (Other)
  Sender: FDA-Public Use
  Company Number: US-PFIZER INC-2011121841

PATIENT
  Sex: Male

DRUGS (4)
  1. COUMADIN [Concomitant]
  2. MOBIC [Suspect]
  3. BC POWDER [Suspect]
  4. IBUPROFEN [Suspect]

REACTIONS (2)
  - GASTROINTESTINAL HAEMORRHAGE [None]
  - PAIN [None]
